FAERS Safety Report 19829989 (Version 2)
Quarter: 2021Q3

REPORT INFORMATION
  Report Type: Spontaneous
  Country: CA (occurrence: CA)
  Receive Date: 20210915
  Receipt Date: 20210922
  Transmission Date: 20211014
  Serious: Yes (Other)
  Sender: FDA-Public Use
  Company Number: CA-SUN PHARMACEUTICAL INDUSTRIES LTD-2021R1-310825

PATIENT
  Age: 80 Year
  Sex: Female

DRUGS (1)
  1. APO?CITALOPRAM [Suspect]
     Active Substance: CITALOPRAM HYDROBROMIDE
     Indication: STIFF PERSON SYNDROME
     Dosage: 20 MILLIGRAM, DAILY
     Route: 065

REACTIONS (1)
  - Condition aggravated [Recovering/Resolving]
